FAERS Safety Report 8915053 (Version 3)
Quarter: 2013Q1

REPORT INFORMATION
  Report Type: Report from Study
  Country: GB (occurrence: GB)
  Receive Date: 20121116
  Receipt Date: 20130301
  Transmission Date: 20140127
  Serious: Yes (Hospitalization)
  Sender: FDA-Public Use
  Company Number: GB-GLAXOSMITHKLINE-B0820973B

PATIENT
  Age: 47 Year
  Sex: Male

DRUGS (4)
  1. PAZOPANIB [Suspect]
     Indication: METASTATIC RENAL CELL CARCINOMA
     Dosage: 800MG PER DAY
     Route: 048
     Dates: start: 20120403, end: 20121113
  2. AMLODIPINE [Concomitant]
  3. PARACETAMOL [Concomitant]
  4. OXYCODONE [Concomitant]

REACTIONS (1)
  - Anaemia [Recovered/Resolved]
